FAERS Safety Report 15723441 (Version 1)
Quarter: 2018Q4

REPORT INFORMATION
  Report Type: Spontaneous
  Country: US (occurrence: US)
  Receive Date: 20181214
  Receipt Date: 20181214
  Transmission Date: 20190205
  Serious: No
  Sender: FDA-Public Use
  Company Number: None

PATIENT
  Age: 47 Year
  Sex: Female
  Weight: 65.25 kg

DRUGS (3)
  1. TRAIMCINOLONE CREAM [Concomitant]
     Dates: start: 20181201, end: 20181214
  2. BASAGLAR [Concomitant]
     Active Substance: INSULIN GLARGINE
     Dates: start: 20181201, end: 20181214
  3. TRADJENTA [Suspect]
     Active Substance: LINAGLIPTIN
     Indication: TYPE 2 DIABETES MELLITUS
     Dates: start: 20181201, end: 20181214

REACTIONS (1)
  - Dry mouth [None]

NARRATIVE: CASE EVENT DATE: 20181213
